FAERS Safety Report 23062728 (Version 3)
Quarter: 2024Q3

REPORT INFORMATION
  Report Type: Spontaneous
  Country: US (occurrence: US)
  Receive Date: 20231013
  Receipt Date: 20240711
  Transmission Date: 20241017
  Serious: No
  Sender: PHARMING GROUP
  Company Number: US-PHARMING-PHAUS2023000758

PATIENT

DRUGS (4)
  1. RUCONEST [Suspect]
     Active Substance: CONESTAT ALFA
     Indication: Hereditary angioedema
     Dosage: 3150 IU, AS NEEDED
     Route: 042
     Dates: start: 202204
  2. RUCONEST [Suspect]
     Active Substance: CONESTAT ALFA
     Dosage: 3150 IU, PRN
     Route: 042
     Dates: start: 202204
  3. RUCONEST [Suspect]
     Active Substance: CONESTAT ALFA
     Dosage: 3150 IU, AS NEEDED FOR HAE
     Route: 042
     Dates: start: 20220404
  4. TAKHZYRO [Concomitant]
     Active Substance: LANADELUMAB-FLYO
     Indication: Product used for unknown indication

REACTIONS (1)
  - Weight fluctuation [Unknown]
